FAERS Safety Report 19032500 (Version 2)
Quarter: 2021Q2

REPORT INFORMATION
  Report Type: Spontaneous
  Country: DE (occurrence: DE)
  Receive Date: 20210319
  Receipt Date: 20210615
  Transmission Date: 20210717
  Serious: Yes (Hospitalization, Other)
  Sender: FDA-Public Use
  Company Number: DE-GLAXOSMITHKLINE-DECH2021013041

PATIENT
  Age: 73 Year
  Sex: Male

DRUGS (6)
  1. OMEPRAZOL [Concomitant]
     Active Substance: OMEPRAZOLE
     Indication: PRODUCT USED FOR UNKNOWN INDICATION
     Dosage: 20 MG,QD (20 MG, 1?0?0?0)
     Route: 065
  2. METHOTREXAT [Suspect]
     Active Substance: METHOTREXATE
     Indication: PRODUCT USED FOR UNKNOWN INDICATION
     Dosage: 10 MG (ZULETZT AM 11?12?2020  )
     Route: 065
  3. ATORVASTATIN [Concomitant]
     Active Substance: ATORVASTATIN
     Indication: PRODUCT USED FOR UNKNOWN INDICATION
     Dosage: 40 MG,QD (40 MG, 0?0?1?0)
     Route: 065
  4. TERBINAFINE. [Suspect]
     Active Substance: TERBINAFINE
     Indication: PRODUCT USED FOR UNKNOWN INDICATION
     Dosage: 125 MG,QD (125 MG, 0?0?1?0)
     Route: 065
  5. ELIGARD [Suspect]
     Active Substance: LEUPROLIDE ACETATE
     Indication: PRODUCT USED FOR UNKNOWN INDICATION
     Dosage: 22.5 MG
     Route: 058
  6. ASS 100 (ACETYLSALICYLIC ACID) [Suspect]
     Active Substance: ASPIRIN
     Indication: PRODUCT USED FOR UNKNOWN INDICATION
     Dosage: 100 MG,QD (100 MG, 1?0?0?0)
     Route: 065

REACTIONS (5)
  - Product prescribing error [Unknown]
  - Pancytopenia [Unknown]
  - Epistaxis [Unknown]
  - Tongue discomfort [Unknown]
  - Decreased appetite [Unknown]
